FAERS Safety Report 23359674 (Version 2)
Quarter: 2024Q1

REPORT INFORMATION
  Report Type: Report from Study
  Country: US (occurrence: US)
  Receive Date: 20240103
  Receipt Date: 20240205
  Transmission Date: 20240410
  Serious: Yes (Death, Hospitalization)
  Sender: FDA-Public Use
  Company Number: US-EXELIXIS-CABO-23071988

PATIENT
  Sex: Male

DRUGS (5)
  1. CABOMETYX [Suspect]
     Active Substance: CABOZANTINIB S-MALATE
     Indication: Metastatic renal cell carcinoma
     Dosage: 40 MG
     Dates: start: 202303
  2. CABOMETYX [Suspect]
     Active Substance: CABOZANTINIB S-MALATE
     Dosage: 40 MG /20 MG ALTERNATIVELY
     Dates: end: 20231129
  3. LEVOTHYROXINE [Concomitant]
     Active Substance: LEVOTHYROXINE\LEVOTHYROXINE SODIUM
  4. LEVETIRACETAM [Concomitant]
     Active Substance: LEVETIRACETAM
  5. LACOSAMIDE [Concomitant]
     Active Substance: LACOSAMIDE

REACTIONS (5)
  - Occipital lobe epilepsy [Fatal]
  - Decreased appetite [Unknown]
  - Therapy partial responder [Unknown]
  - Product prescribing issue [Unknown]
  - Inappropriate schedule of product administration [Unknown]
